FAERS Safety Report 25990861 (Version 2)
Quarter: 2025Q4

REPORT INFORMATION
  Report Type: Spontaneous
  Country: US (occurrence: US)
  Receive Date: 20251103
  Receipt Date: 20251112
  Transmission Date: 20260117
  Serious: Yes (Other)
  Sender: DR REDDYS
  Company Number: None

PATIENT
  Age: 62 Year
  Sex: Female

DRUGS (3)
  1. GEMCITABINE [Suspect]
     Active Substance: GEMCITABINE
     Indication: Epithelioid sarcoma
     Dosage: 1500 MG/M2
     Dates: start: 20230829
  2. DOCETAXEL [Suspect]
     Active Substance: DOCETAXEL
     Indication: Epithelioid sarcoma
     Dosage: 50 MG/M2
     Dates: start: 20230829
  3. DOXORUBICIN [Suspect]
     Active Substance: DOXORUBICIN
     Indication: Epithelioid sarcoma
     Dosage: 60 MG/M2
     Dates: start: 20230321, end: 20230725

REACTIONS (4)
  - Hyponatraemia [Unknown]
  - Pleural effusion [Unknown]
  - Performance status decreased [Unknown]
  - Product use in unapproved indication [Unknown]
